FAERS Safety Report 11029368 (Version 1)
Quarter: 2015Q2

REPORT INFORMATION
  Report Type: Spontaneous
  Country: DE (occurrence: DE)
  Receive Date: 20150415
  Receipt Date: 20150415
  Transmission Date: 20150821
  Serious: Yes (Other)
  Sender: FDA-Public Use
  Company Number: DE-CIPLA LTD.-2015DE02812

PATIENT

DRUGS (5)
  1. EPIRUBICIN [Suspect]
     Active Substance: EPIRUBICIN
     Indication: HER-2 POSITIVE BREAST CANCER
     Dosage: 90 MG/M2 FOUR 3 WEEK CYCLES
  2. AFATINIB [Suspect]
     Active Substance: AFATINIB
     Indication: HER-2 POSITIVE BREAST CANCER
     Dosage: 20 MG FOR 17 WEEKS
  3. PACLITAXEL. [Suspect]
     Active Substance: PACLITAXEL
     Indication: HER-2 POSITIVE BREAST CANCER
     Dosage: 80 MG/M? 12 WEEKLY COURSES
  4. CYCLOPHOSPHAMIDE. [Suspect]
     Active Substance: CYCLOPHOSPHAMIDE
     Indication: HER-2 POSITIVE BREAST CANCER
     Dosage: 600 MG/M2 FOUR 3 WEEK CYCLES
  5. TRASTUZUMAB [Suspect]
     Active Substance: TRASTUZUMAB
     Indication: HER-2 POSITIVE BREAST CANCER
     Dosage: LOADING DOSE OF 8MG/KG AND LATER 6 MG/KG EVERY 3 WEEKS FOR 10 CYCLES

REACTIONS (1)
  - Disease progression [Unknown]
